FAERS Safety Report 19647361 (Version 2)
Quarter: 2022Q2

REPORT INFORMATION
  Report Type: Spontaneous
  Country: US (occurrence: US)
  Receive Date: 20210802
  Receipt Date: 20220503
  Transmission Date: 20220721
  Serious: No
  Sender: FDA-Public Use
  Company Number: US-PFIZER INC-2018239964

PATIENT
  Age: 63 Year
  Sex: Female
  Weight: 95.25 kg

DRUGS (2)
  1. LYRICA [Suspect]
     Active Substance: PREGABALIN
     Indication: Hypoaesthesia
     Dosage: 225 MG, 3X/DAY (225 MG, TID)
  2. LYRICA [Suspect]
     Active Substance: PREGABALIN
     Indication: Neuropathy peripheral
     Dosage: 225 MG, 2X/DAY

REACTIONS (2)
  - Drug ineffective [Unknown]
  - Prescribed overdose [Unknown]
